FAERS Safety Report 8777515 (Version 2)
Quarter: 2017Q3

REPORT INFORMATION
  Report Type: Spontaneous
  Country: US (occurrence: US)
  Receive Date: 20120912
  Receipt Date: 20170824
  Transmission Date: 20171128
  Serious: No
  Sender: FDA-Public Use
  Company Number: US-ASTRAZENECA-2012SE69987

PATIENT
  Age: 49 Year
  Sex: Female
  Weight: 108.9 kg

DRUGS (4)
  1. BREO ELLIPTA [Concomitant]
     Active Substance: FLUTICASONE FUROATE\VILANTEROL TRIFENATATE
     Indication: ASTHMA
     Route: 048
     Dates: start: 201706, end: 2017
  2. SYMBICORT [Suspect]
     Active Substance: BUDESONIDE\FORMOTEROL FUMARATE DIHYDRATE
     Indication: ASTHMA
     Dosage: UNKNOWN UNKNOWN
     Route: 055
     Dates: start: 2004
  3. SYMBICORT [Suspect]
     Active Substance: BUDESONIDE\FORMOTEROL FUMARATE DIHYDRATE
     Indication: ASTHMA
     Dosage: 80/ 4.5 MCG, DAILY UNKNOWN
     Route: 055
  4. SYMBICORT [Suspect]
     Active Substance: BUDESONIDE\FORMOTEROL FUMARATE DIHYDRATE
     Indication: ASTHMA
     Dosage: 160 /4.5, 2 PUFFS TWICE DAILY UNKNOWN
     Route: 055
     Dates: end: 201706

REACTIONS (8)
  - Weight decreased [Unknown]
  - Drug ineffective [Unknown]
  - Insurance issue [Unknown]
  - Road traffic accident [Unknown]
  - Circumstance or information capable of leading to medication error [Unknown]
  - Hypopnoea [Unknown]
  - Migraine [Unknown]
  - Dyspnoea [Unknown]
